FAERS Safety Report 10286035 (Version 2)
Quarter: 2014Q3

REPORT INFORMATION
  Report Type: Spontaneous
  Country: US (occurrence: None)
  Receive Date: 20140703
  Receipt Date: 20140811
  Transmission Date: 20150326
  Serious: No
  Sender: FDA-Public Use
  Company Number: 2014-00078

PATIENT
  Age: 78 Year
  Sex: Male
  Weight: 59.88 kg

DRUGS (5)
  1. ZICAM COLD REMEDY [Suspect]
     Active Substance: ZINC ACETATE\ZINC GLUCONATE
     Indication: NASOPHARYNGITIS
     Dosage: ONE SPRAY ORALLY EVERY 3 HOURS
     Route: 048
     Dates: start: 20140622, end: 20140625
  2. VALTREX [Concomitant]
     Active Substance: VALACYCLOVIR HYDROCHLORIDE
  3. ZICAM COLD REMEDY [Suspect]
     Active Substance: ZINC ACETATE\ZINC GLUCONATE
     Indication: OROPHARYNGEAL PAIN
     Dosage: ONE SPRAY ORALLY EVERY 3 HOURS
     Route: 048
     Dates: start: 20140622, end: 20140625
  4. MECLIZINE [Concomitant]
     Active Substance: MECLIZINE\MECLIZINE HYDROCHLORIDE
  5. FLOMAX [Concomitant]
     Active Substance: TAMSULOSIN HYDROCHLORIDE

REACTIONS (3)
  - Dysgeusia [None]
  - Parosmia [None]
  - Hypogeusia [None]

NARRATIVE: CASE EVENT DATE: 20140624
